FAERS Safety Report 17436763 (Version 1)
Quarter: 2020Q1

REPORT INFORMATION
  Report Type: Spontaneous
  Country: US (occurrence: US)
  Receive Date: 20200219
  Receipt Date: 20200219
  Transmission Date: 20200409
  Serious: No
  Sender: FDA-Public Use
  Company Number: US-SA-2020SA040802

PATIENT
  Age: 54 Year
  Sex: Male

DRUGS (4)
  1. CEFPROZIL. [Concomitant]
     Active Substance: CEFPROZIL
  2. DUPIXENT [Suspect]
     Active Substance: DUPILUMAB
     Indication: DERMATITIS ATOPIC
     Dosage: UNK
     Route: 058
  3. TRIAMCINOLONE [Concomitant]
     Active Substance: TRIAMCINOLONE
  4. DECONEX [GUAIFENESIN;PSEUDOEPHEDRINE HYDROCHLORIDE] [Concomitant]

REACTIONS (4)
  - Discomfort [Not Recovered/Not Resolved]
  - Dermatitis atopic [Not Recovered/Not Resolved]
  - Rash [Not Recovered/Not Resolved]
  - Product dose omission [Not Recovered/Not Resolved]
